FAERS Safety Report 9514901 (Version 1)
Quarter: 2013Q3

REPORT INFORMATION
  Report Type: Spontaneous
  Country: US (occurrence: None)
  Receive Date: 20130909
  Receipt Date: 20130909
  Transmission Date: 20140515
  Serious: Yes (Other)
  Sender: FDA-Public Use
  Company Number: DEP_01042_2013

PATIENT
  Sex: Male

DRUGS (2)
  1. GRALISE [Suspect]
     Indication: BACK PAIN
     Route: 048
     Dates: start: 20130904
  2. GRALISE [Suspect]
     Indication: OFF LABEL USE
     Route: 048
     Dates: start: 20130904

REACTIONS (3)
  - Erection increased [None]
  - Painful erection [None]
  - Activities of daily living impaired [None]
